FAERS Safety Report 23559643 (Version 2)
Quarter: 2024Q1

REPORT INFORMATION
  Report Type: Spontaneous
  Country: US (occurrence: None)
  Receive Date: 20240223
  Receipt Date: 20240328
  Transmission Date: 20240410
  Serious: Yes (Other)
  Sender: FDA-Public Use
  Company Number: 2024A039752

PATIENT
  Age: 23283 Day
  Sex: Male

DRUGS (1)
  1. SYMBICORT [Suspect]
     Active Substance: BUDESONIDE\FORMOTEROL FUMARATE DIHYDRATE
     Dosage: 160 UG, TWO TIMES A DAY,STARTED SYMBICORT 2017-2018. USES 2 PUFFS IN THE MORNING AND 2 PUFFS IN T...
     Route: 055

REACTIONS (7)
  - Chronic obstructive pulmonary disease [Unknown]
  - Road traffic accident [Unknown]
  - Face injury [Unknown]
  - Dyspnoea [Unknown]
  - Cataract [Unknown]
  - Vision blurred [Unknown]
  - Device delivery system issue [Unknown]

NARRATIVE: CASE EVENT DATE: 20220401
